FAERS Safety Report 9711129 (Version 3)
Quarter: 2014Q2

REPORT INFORMATION
  Report Type: Spontaneous
  Country: US (occurrence: US)
  Receive Date: 20131126
  Receipt Date: 20140510
  Transmission Date: 20141212
  Serious: No
  Sender: FDA-Public Use
  Company Number: US-BRISTOL-MYERS SQUIBB COMPANY-19151943

PATIENT
  Age: 62 Year
  Sex: Male
  Weight: 133.78 kg

DRUGS (2)
  1. BYETTA [Suspect]
     Indication: TYPE 2 DIABETES MELLITUS
     Dosage: INITAL DOSE-5MCG,BID DOSE INCREASED TO 10MCG,BID?AGAIN REDUCED TO 5MCG
     Route: 058
  2. METFORMIN HCL [Suspect]

REACTIONS (3)
  - Diarrhoea [Recovered/Resolved]
  - Abdominal distension [Recovered/Resolved]
  - Blood triglycerides increased [Recovered/Resolved]
